FAERS Safety Report 8371608 (Version 2)
Quarter: 2012Q4

REPORT INFORMATION
  Report Type: Report from Study
  Country: CA (occurrence: CA)
  Receive Date: 20120131
  Receipt Date: 20121119
  Transmission Date: 20130627
  Serious: Yes (Hospitalization)
  Sender: FDA-Public Use
  Company Number: CA-SHIRE-ALL1-2012-00332

PATIENT
  Age: 14 Year
  Sex: Male
  Weight: 28.2 kg

DRUGS (1)
  1. IDURSULFASE [Suspect]
     Indication: MUCOPOLYSACCHARIDOSIS II
     Dosage: 18 mg (3 vials), 1x/week
     Route: 041
     Dates: start: 20080813

REACTIONS (3)
  - Choking [Recovering/Resolving]
  - Cough [Recovering/Resolving]
  - Increased upper airway secretion [Recovering/Resolving]
